FAERS Safety Report 5148220-5 (Version None)
Quarter: 2006Q4

REPORT INFORMATION
  Report Type: 
  Country: None (occurrence: None)
  Receive Date: 20061110
  Receipt Date: 20061109
  Transmission Date: 20070319
  Serious: Yes (Other)
  Sender: FDA-Public Use
  Company Number: GB-BOEHRINGER INGELHEIM PHARMACEUTICALS, INC.-2006-UK-04572UK

PATIENT
  Age: 62 Year
  Sex: Male
  Weight: 66 kg

DRUGS (1)
  1. SPIRIVA [Suspect]
     Route: 055
     Dates: start: 20060913, end: 20060920

REACTIONS (3)
  - BLADDER DISCOMFORT [None]
  - HEADACHE [None]
  - STOMACH DISCOMFORT [None]
